FAERS Safety Report 11879121 (Version 3)
Quarter: 2016Q1

REPORT INFORMATION
  Report Type: Report from Study
  Country: DE (occurrence: DE)
  Receive Date: 20151230
  Receipt Date: 20160325
  Transmission Date: 20160526
  Serious: Yes (Hospitalization)
  Sender: FDA-Public Use
  Company Number: DE-BIOGEN-2015BI142026

PATIENT
  Age: 45 Year
  Sex: Female

DRUGS (7)
  1. DULOXALTA [Concomitant]
     Indication: DEPRESSION
     Route: 065
     Dates: start: 201506, end: 201509
  2. TECFIDERA [Suspect]
     Active Substance: DIMETHYL FUMARATE
     Indication: MULTIPLE SCLEROSIS
     Route: 048
     Dates: start: 20140623
  3. DULOXALTA [Concomitant]
     Indication: NEURALGIA
  4. TECFIDERA [Suspect]
     Active Substance: DIMETHYL FUMARATE
     Route: 048
     Dates: start: 20140616
  5. TECFIDERA [Suspect]
     Active Substance: DIMETHYL FUMARATE
     Route: 048
     Dates: start: 20150630
  6. NORTRILEN [Concomitant]
     Active Substance: NORTRIPTYLINE
     Indication: NEURALGIA
     Route: 048
     Dates: start: 201509, end: 201601
  7. DULOXALTA [Concomitant]
     Indication: PAIN

REACTIONS (7)
  - Multiple sclerosis relapse [Recovered/Resolved]
  - Body temperature decreased [Recovered/Resolved with Sequelae]
  - Multiple sclerosis [Not Recovered/Not Resolved]
  - Arthralgia [Unknown]
  - Weight increased [Recovered/Resolved]
  - Hypokalaemia [Unknown]
  - Thyroid function test abnormal [Not Recovered/Not Resolved]

NARRATIVE: CASE EVENT DATE: 20140623
